FAERS Safety Report 8538147-0 (Version None)
Quarter: 2012Q3

REPORT INFORMATION
  Report Type: 
  Country: None (occurrence: None)
  Receive Date: 20120726
  Receipt Date: 20120713
  Transmission Date: 20120928
  Serious: Yes (Life-Threatening, Hospitalization)
  Sender: FDA-Public Use
  Company Number: US-BRISTOL-MYERS SQUIBB COMPANY-16803660

PATIENT
  Age: 33 Day
  Sex: Female

DRUGS (4)
  1. ZOLOFT [Concomitant]
     Dates: start: 20050101
  2. ATIVAN [Concomitant]
     Dates: start: 20060101
  3. ARIPIPRAZOLE [Suspect]
     Indication: SCHIZOPHRENIA
     Route: 030
     Dates: start: 20120531
  4. HALDOL [Concomitant]
     Dosage: 10MG ALSO
     Dates: start: 20120704

REACTIONS (1)
  - PSYCHIATRIC SYMPTOM [None]
